FAERS Safety Report 5147275-1 (Version None)
Quarter: 2006Q4

REPORT INFORMATION
  Report Type: 
  Country: None (occurrence: None)
  Receive Date: 20061103
  Receipt Date: 20061012
  Transmission Date: 20070319
  Serious: Yes (Other)
  Sender: FDA-Public Use
  Company Number: 2006129671

PATIENT
  Sex: Female

DRUGS (3)
  1. CELEBREX [Suspect]
     Dates: start: 20000801, end: 20010301
  2. BEXTRA [Suspect]
     Dates: start: 20040501, end: 20041001
  3. VIOXX [Suspect]
     Dates: start: 20010301, end: 20040401

REACTIONS (1)
  - CEREBROVASCULAR ACCIDENT [None]
